FAERS Safety Report 13926154 (Version 7)
Quarter: 2019Q2

REPORT INFORMATION
  Report Type: Spontaneous
  Country: US (occurrence: US)
  Receive Date: 20170831
  Receipt Date: 20190408
  Transmission Date: 20190711
  Serious: Yes (Hospitalization, Other)
  Sender: FDA-Public Use
  Company Number: US-DSJP-DSU-2017-133167

PATIENT

DRUGS (2)
  1. UCERIS [Suspect]
     Active Substance: BUDESONIDE
     Indication: PRODUCT USED FOR UNKNOWN INDICATION
  2. TRIBENZOR [Suspect]
     Active Substance: AMLODIPINE BESYLATE\HYDROCHLOROTHIAZIDE\OLMESARTAN MEDOXOMIL
     Indication: PRODUCT USED FOR UNKNOWN INDICATION
     Dosage: 40/5/25MG, QD
     Route: 048

REACTIONS (10)
  - Sprue-like enteropathy [Recovering/Resolving]
  - Nausea [Unknown]
  - Cholecystitis chronic [Unknown]
  - Colon adenoma [Unknown]
  - Gastric fibrosis [Unknown]
  - Haematemesis [Unknown]
  - Large intestine polyp [Recovered/Resolved]
  - Vomiting [Unknown]
  - Gastrointestinal injury [Unknown]
  - Barrett^s oesophagus [Unknown]

NARRATIVE: CASE EVENT DATE: 20080807
